FAERS Safety Report 9038538 (Version 2)
Quarter: 2013Q2

REPORT INFORMATION
  Report Type: Report from Study
  Country: JP (occurrence: JP)
  Receive Date: 20130129
  Receipt Date: 20130401
  Transmission Date: 20140414
  Serious: Yes (Death)
  Sender: FDA-Public Use
  Company Number: JP-ABBOTT-13P-087-1041962-00

PATIENT
  Age: 43 Year
  Sex: Male

DRUGS (3)
  1. LIPACREON [Suspect]
     Indication: PANCREATIC INSUFFICIENCY
     Route: 048
     Dates: start: 20111125, end: 20120906
  2. CAMOSTAT MESILATE [Concomitant]
     Indication: PANCREATIC INSUFFICIENCY
     Route: 048
     Dates: end: 20120504
  3. OMEPRAZOLE [Concomitant]
     Indication: PANCREATIC INSUFFICIENCY
     Route: 048
     Dates: end: 20120906

REACTIONS (3)
  - Lymphoma [Fatal]
  - Acute myelomonocytic leukaemia [Fatal]
  - General physical health deterioration [Unknown]
